FAERS Safety Report 22031168 (Version 1)
Quarter: 2023Q1

REPORT INFORMATION
  Report Type: Spontaneous
  Country: SA (occurrence: SA)
  Receive Date: 20230223
  Receipt Date: 20230223
  Transmission Date: 20230417
  Serious: Yes (Other)
  Sender: FDA-Public Use
  Company Number: SA-SUN PHARMACEUTICAL INDUSTRIES LTD-2023R1-380451

PATIENT
  Age: 23 Year
  Sex: Male

DRUGS (2)
  1. METHOTREXATE [Suspect]
     Active Substance: METHOTREXATE
     Indication: Granuloma skin
     Dosage: 20 MILLIGRAM, WEEKLY
     Route: 065
  2. FOLIC ACID [Concomitant]
     Active Substance: FOLIC ACID
     Indication: Granuloma skin
     Dosage: 5 MILLIGRAM, WEEKLY
     Route: 065

REACTIONS (1)
  - Epidermodysplasia verruciformis [Recovered/Resolved]
